FAERS Safety Report 7363450-X (Version None)
Quarter: 2011Q1

REPORT INFORMATION
  Report Type: 
  Country: None (occurrence: None)
  Receive Date: 20110321
  Receipt Date: 20110311
  Transmission Date: 20110831
  Serious: Yes (Other)
  Sender: FDA-Public Use
  Company Number: US-MYLANLABS-2011S1005307

PATIENT
  Age: 54 Year
  Sex: Female
  Weight: 54.43 kg

DRUGS (5)
  1. FENTANYL-100 [Suspect]
     Indication: SPINAL FUSION SURGERY
     Dosage: 1 PATCH Q2D
     Route: 062
     Dates: start: 20040101, end: 20090801
  2. FENTANYL-100 [Suspect]
     Dosage: 1 PATCH Q2D
     Route: 062
  3. FENTANYL-100 [Suspect]
     Dosage: 1 PATCH Q2D
     Route: 062
     Dates: start: 20040101, end: 20090801
  4. ACETAMINOPHEN AND HYDROCODONE BITARTRATE [Suspect]
     Indication: BREAKTHROUGH PAIN
     Route: 048
  5. ACETAMINOPHEN AND HYDROCODONE BITARTRATE [Suspect]
     Route: 048

REACTIONS (18)
  - AMNESIA [None]
  - FATIGUE [None]
  - YAWNING [None]
  - LOSS OF CONSCIOUSNESS [None]
  - HEART RATE ABNORMAL [None]
  - DYSPNOEA [None]
  - OEDEMA PERIPHERAL [None]
  - GRAND MAL CONVULSION [None]
  - COGNITIVE DISORDER [None]
  - FEELING ABNORMAL [None]
  - WEIGHT DECREASED [None]
  - VOMITING [None]
  - TREMOR [None]
  - DRUG EFFECT DECREASED [None]
  - MULTIPLE SCLEROSIS [None]
  - APHASIA [None]
  - HEART RATE IRREGULAR [None]
  - SNEEZING [None]
